FAERS Safety Report 9768979 (Version 5)
Quarter: 2014Q2

REPORT INFORMATION
  Report Type: Spontaneous
  Country: US (occurrence: None)
  Receive Date: 20130828
  Receipt Date: 20140509
  Transmission Date: 20141212
  Serious: Yes (Other)
  Sender: FDA-Public Use
  Company Number: CIO13044519

PATIENT
  Age: 39 Year
  Sex: Female
  Weight: 86 kg

DRUGS (9)
  1. CG FACE FOUNDATION ADVRAIANC AGEDEFYING [Suspect]
     Indication: SCAR
     Dosage: 1 APPLIC
     Route: 061
     Dates: start: 20130726, end: 20130727
  2. CG FACE FOUNDATION ADVRAIANC AGEDEFYING [Suspect]
     Indication: SKIN WRINKLING
     Dosage: 1 APPLIC
     Route: 061
     Dates: start: 20130726, end: 20130727
  3. CG FACE FOUNDATION ADVRAIANC AGEDEFYING [Suspect]
     Indication: SKIN WRINKLING
     Dosage: 1 APPLIC
     Route: 061
     Dates: start: 20130726, end: 20130727
  4. WELLBUTRIN [Concomitant]
  5. VALIUM [Concomitant]
  6. PEPCID [Concomitant]
  7. PHENERGAN  (PROMETHAZINE) [Concomitant]
  8. LASIX [Concomitant]
  9. POTASSIUM (POTASSIUM) [Concomitant]

REACTIONS (29)
  - Asphyxia [None]
  - Upper airway obstruction [None]
  - Obstructive airways disorder [None]
  - Dyspnoea [None]
  - Hypoxia [None]
  - Pharyngeal oedema [None]
  - Throat tightness [None]
  - Drug hypersensitivity [None]
  - Blister [None]
  - Oral mucosal blistering [None]
  - Gingival blister [None]
  - Lip blister [None]
  - Eye swelling [None]
  - Skin swelling [None]
  - Swelling face [None]
  - Lip swelling [None]
  - Oedema mouth [None]
  - Secretion discharge [None]
  - Rash erythematous [None]
  - Rash [None]
  - Gingival pain [None]
  - Eye pain [None]
  - Eye disorder [None]
  - Macule [None]
  - Impaired work ability [None]
  - Hypersensitivity [None]
  - Infection [None]
  - Erythema [None]
  - Oral pain [None]
